FAERS Safety Report 6004266-6 (Version None)
Quarter: 2008Q4

REPORT INFORMATION
  Report Type: 
  Country: None (occurrence: None)
  Receive Date: 20081215
  Receipt Date: 20081215
  Transmission Date: 20090506
  Serious: Yes (Life-Threatening, Hospitalization)
  Sender: FDA-Public Use
  Company Number: None

PATIENT
  Sex: Female
  Weight: 74.8435 kg

DRUGS (7)
  1. CLOZAPINE [Suspect]
     Indication: PSYCHOTIC DISORDER
     Dosage: 400 MG HS PO 200 MG AM PO
     Route: 048
     Dates: start: 20080702, end: 20081023
  2. CLOZAPINE [Suspect]
     Indication: PSYCHOTIC DISORDER
     Dosage: 400 MG HS PO 200 MG AM PO
     Route: 048
     Dates: start: 20080702, end: 20081023
  3. FERROUS SULFATE TAB [Concomitant]
  4. OLANZAPINE [Concomitant]
  5. LORAZEPAM [Concomitant]
  6. HALOPERIDOL [Concomitant]
  7. LORAZEPAM [Concomitant]

REACTIONS (4)
  - ANAEMIA [None]
  - PETECHIAE [None]
  - REFUSAL OF TREATMENT BY PATIENT [None]
  - THROMBOCYTOPENIA [None]
